FAERS Safety Report 14161056 (Version 1)
Quarter: 2017Q4

REPORT INFORMATION
  Report Type: Spontaneous
  Country: BA (occurrence: BA)
  Receive Date: 20171106
  Receipt Date: 20171106
  Transmission Date: 20180321
  Serious: Yes (Life-Threatening)
  Sender: FDA-Public Use
  Company Number: BA-SA-2017SA201671

PATIENT
  Age: 40 Year
  Sex: Female
  Weight: 61 kg

DRUGS (8)
  1. EPOETIN BETA [Concomitant]
     Active Substance: ERYTHROPOIETIN
     Route: 058
     Dates: start: 201704
  2. FOLAN [Concomitant]
     Active Substance: FOLIC ACID
     Dosage: 5MG 1X1
     Route: 065
     Dates: start: 201704
  3. NOVORAPID [Concomitant]
     Active Substance: INSULIN ASPART
     Route: 065
     Dates: start: 201704
  4. ASPIRIN. [Concomitant]
     Active Substance: ASPIRIN
     Dosage: 100MG 1X1
     Route: 065
     Dates: start: 201704
  5. ENAP [Concomitant]
     Active Substance: ENALAPRIL
     Dosage: 10MG 2X1
     Route: 065
     Dates: start: 201704
  6. BERLITHION [Concomitant]
     Dosage: 600MG 1X1
     Route: 065
     Dates: start: 201704
  7. FERRLECIT [Suspect]
     Active Substance: SODIUM FERRIC GLUCONATE COMPLEX
     Indication: ANAEMIA
     Route: 042
     Dates: start: 20120319, end: 20170929
  8. CALCIUM CARBONATE. [Concomitant]
     Active Substance: CALCIUM CARBONATE
     Dosage: 1000MG 2X1/2
     Route: 065
     Dates: start: 201704

REACTIONS (8)
  - Blood glucose increased [Not Recovered/Not Resolved]
  - Incorrect dose administered [Unknown]
  - Hypoaesthesia oral [Unknown]
  - Nausea [Recovering/Resolving]
  - Blood pressure decreased [Recovered/Resolved with Sequelae]
  - Abdominal pain upper [Recovered/Resolved with Sequelae]
  - Asthenia [Recovered/Resolved with Sequelae]
  - Malaise [Recovered/Resolved]

NARRATIVE: CASE EVENT DATE: 20170922
